FAERS Safety Report 8161201-2 (Version None)
Quarter: 2012Q1

REPORT INFORMATION
  Report Type: 
  Country: None (occurrence: None)
  Receive Date: 20120103
  Receipt Date: 20111010
  Transmission Date: 20120608
  Serious: No
  Sender: FDA-Public Use
  Company Number: AE-2011-001544

PATIENT
  Age: 68 Year
  Sex: Female
  Weight: 136.0791 kg

DRUGS (11)
  1. JANUVIA [Concomitant]
  2. PAXIL [Concomitant]
  3. COREG [Concomitant]
  4. ALTACE [Concomitant]
  5. LOSARTAN POTASSIUM [Concomitant]
  6. XASAL (LEVOCETIRIZINE) [Concomitant]
  7. INCIVEK [Suspect]
     Dosage: 2250 MG (750 MG, 3 IN 1 D), ORAL
     Route: 048
     Dates: start: 20110812
  8. KLONOPIN [Concomitant]
  9. METFORMIN HCL [Concomitant]
  10. PEGASYS [Concomitant]
  11. RIBAVIRIN [Concomitant]

REACTIONS (1)
  - HEPATITIS C RNA INCREASED [None]
